FAERS Safety Report 10135856 (Version 2)
Quarter: 2014Q4

REPORT INFORMATION
  Report Type: Spontaneous
  Country: FR (occurrence: FR)
  Receive Date: 20140429
  Receipt Date: 20141008
  Transmission Date: 20150528
  Serious: Yes (Hospitalization)
  Sender: FDA-Public Use
  Company Number: FR-ROCHE-1385276

PATIENT
  Age: 45 Year
  Sex: Male

DRUGS (12)
  1. DITROPAN [Concomitant]
     Active Substance: OXYBUTYNIN CHLORIDE
     Route: 065
  2. RIBAVIRIN. [Suspect]
     Active Substance: RIBAVIRIN
     Indication: HEPATITIS C
     Route: 048
     Dates: start: 20131114, end: 201403
  3. METHADONE [Concomitant]
     Active Substance: METHADONE HYDROCHLORIDE
     Route: 065
  4. TRAMADOL [Concomitant]
     Active Substance: TRAMADOL
     Route: 065
  5. FLUCONAZOLE. [Concomitant]
     Active Substance: FLUCONAZOLE
     Route: 065
  6. VENLAFAXINE [Concomitant]
     Active Substance: VENLAFAXINE HYDROCHLORIDE
     Route: 065
  7. HIBISCRUB [Concomitant]
  8. BIAFINE [Concomitant]
     Active Substance: TROLAMINE
  9. PEGASYS [Suspect]
     Active Substance: PEGINTERFERON ALFA-2A
     Indication: HEPATITIS C
     Route: 058
     Dates: start: 20131114, end: 201403
  10. SERESTA [Concomitant]
     Active Substance: OXAZEPAM
     Route: 065
  11. FOLIC ACID. [Concomitant]
     Active Substance: FOLIC ACID
     Route: 065
  12. MYCOSTER [Concomitant]
     Active Substance: CICLOPIROX\CICLOPIROX OLAMINE

REACTIONS (3)
  - Prurigo [Unknown]
  - Pruritus [Unknown]
  - Skin mass [Unknown]

NARRATIVE: CASE EVENT DATE: 201402
